FAERS Safety Report 9820080 (Version 1)
Quarter: 2013Q4

REPORT INFORMATION
  Report Type: Spontaneous
  Country: US (occurrence: None)
  Receive Date: 20131223
  Receipt Date: 20131223
  Transmission Date: 20140711
  Serious: No
  Sender: FDA-Public Use
  Company Number: 221670

PATIENT
  Age: 60 Year
  Sex: Female

DRUGS (3)
  1. PICATO (0.05%) [Suspect]
     Indication: ACTINIC KERATOSIS
     Route: 061
     Dates: start: 20130430, end: 20130501
  2. LEXAPRO (ESCITALOPRAM OXALATE) [Concomitant]
  3. VITAMINS [Concomitant]

REACTIONS (4)
  - Application site reaction [None]
  - Application site warmth [None]
  - Application site discomfort [None]
  - Application site erythema [None]
